FAERS Safety Report 14481316 (Version 3)
Quarter: 2018Q1

REPORT INFORMATION
  Report Type: Report from Study
  Country: FR (occurrence: FR)
  Receive Date: 20180202
  Receipt Date: 20180309
  Transmission Date: 20180509
  Serious: Yes (Hospitalization, Other)
  Sender: FDA-Public Use
  Company Number: FR-PFIZER INC-2018044456

PATIENT
  Age: 58 Year
  Sex: Male

DRUGS (32)
  1. ADVAGRAF [Suspect]
     Active Substance: TACROLIMUS
     Indication: IMMUNOSUPPRESSANT DRUG THERAPY
     Dosage: 10 MG, 1X/DAY
     Route: 065
     Dates: start: 20140701, end: 20140901
  2. ADVAGRAF [Suspect]
     Active Substance: TACROLIMUS
     Dosage: 3 MG, 1X/DAY
     Route: 065
     Dates: start: 20160115, end: 20160204
  3. KARDEGIC [Concomitant]
     Active Substance: ASPIRIN DL-LYSINE
     Dosage: 75 MG, 1X/DAY
     Route: 065
     Dates: start: 20140210
  4. ADVAGRAF [Suspect]
     Active Substance: TACROLIMUS
     Dosage: 6 MG, 1X/DAY
     Route: 065
     Dates: start: 20151103, end: 20151110
  5. ADVAGRAF [Suspect]
     Active Substance: TACROLIMUS
     Dosage: 6 MG, 1X/DAY
     Route: 065
     Dates: start: 20151223, end: 20160115
  6. CERTICAN [Suspect]
     Active Substance: EVEROLIMUS
     Dosage: 2 MG, 1X/DAY
     Route: 048
     Dates: start: 20160115
  7. ADVAGRAF [Suspect]
     Active Substance: TACROLIMUS
     Dosage: 12 MG, 1X/DAY
     Route: 065
     Dates: start: 20151217, end: 20151223
  8. KARDEGIC [Concomitant]
     Active Substance: ASPIRIN DL-LYSINE
     Indication: THROMBOSIS PROPHYLAXIS
     Dosage: 75 MG, 1X/DAY
     Route: 065
     Dates: start: 20140212
  9. ADVAGRAF [Suspect]
     Active Substance: TACROLIMUS
     Dosage: 11 MG, 1X/DAY
     Route: 065
     Dates: start: 20140902, end: 20141226
  10. ADVAGRAF [Suspect]
     Active Substance: TACROLIMUS
     Dosage: 12 MG, 1X/DAY
     Route: 065
     Dates: start: 20141227, end: 20150716
  11. ADVAGRAF [Suspect]
     Active Substance: TACROLIMUS
     Dosage: 11 MG, 1X/DAY
     Route: 065
     Dates: start: 20150717, end: 20151103
  12. CERTICAN [Suspect]
     Active Substance: EVEROLIMUS
     Indication: IMMUNOSUPPRESSANT DRUG THERAPY
     Dosage: 1 MG, 2X/DAY
     Route: 048
     Dates: start: 201401
  13. INEXIUM /01479302/ [Concomitant]
     Active Substance: ESOMEPRAZOLE MAGNESIUM
     Indication: PROPHYLAXIS
     Dosage: 40 MG, UNK
     Route: 065
     Dates: start: 20140701
  14. INIPOMP [Concomitant]
     Active Substance: PANTOPRAZOLE SODIUM
     Indication: PROPHYLAXIS
     Dosage: 40 MG, 1X/DAY
     Route: 048
     Dates: start: 20140101
  15. AMLOR [Concomitant]
     Active Substance: AMLODIPINE BESYLATE
     Dosage: 5 MG, UNK
     Route: 048
     Dates: start: 20160501
  16. CERTICAN [Suspect]
     Active Substance: EVEROLIMUS
     Indication: LIVER TRANSPLANT
     Dosage: 2 MG, 1X/DAY
     Route: 048
     Dates: start: 20151103, end: 20151210
  17. CERTICAN [Suspect]
     Active Substance: EVEROLIMUS
     Dosage: 1 MG, 1X/DAY
     Route: 048
     Dates: start: 20151223, end: 20160114
  18. CERTICAN [Suspect]
     Active Substance: EVEROLIMUS
     Dosage: 2 MG, 1X/DAY
     Dates: start: 20170914
  19. CERTICAN [Suspect]
     Active Substance: EVEROLIMUS
     Dosage: 1 MG, 1X/DAY
     Dates: start: 20170504, end: 20170913
  20. MYFORTIC [Suspect]
     Active Substance: MYCOPHENOLATE SODIUM
     Indication: LIVER TRANSPLANT
     Dosage: 1440 MG, 1X/DAY
     Route: 065
     Dates: start: 20140124
  21. LYRICA [Suspect]
     Active Substance: PREGABALIN
     Dosage: UNK
     Route: 065
  22. CERTICAN [Suspect]
     Active Substance: EVEROLIMUS
     Dosage: 1 MG, 2X/DAY
     Dates: start: 20160712
  23. MYFORTIC [Suspect]
     Active Substance: MYCOPHENOLATE SODIUM
     Dosage: 1440 MG, 1X/DAY
     Route: 065
     Dates: start: 20140701, end: 20160104
  24. MYFORTIC [Suspect]
     Active Substance: MYCOPHENOLATE SODIUM
     Dosage: 720 MG, 2X/DAY
     Route: 065
     Dates: start: 20160115
  25. MYFORTIC [Suspect]
     Active Substance: MYCOPHENOLATE SODIUM
     Dosage: 360 MG, 2X/DAY
     Dates: start: 20160712
  26. INIPOMP [Concomitant]
     Active Substance: PANTOPRAZOLE SODIUM
     Dosage: 40 MG, 1X/DAY
     Route: 048
     Dates: start: 20160712
  27. AMLOR [Concomitant]
     Active Substance: AMLODIPINE BESYLATE
     Indication: HYPERTENSION
     Dosage: 5 MG, UNK
     Dates: start: 201601
  28. AMLOR [Concomitant]
     Active Substance: AMLODIPINE BESYLATE
     Dosage: 5 MG, UNK
     Dates: start: 20160712
  29. ADVAGRAF [Suspect]
     Active Substance: TACROLIMUS
     Dosage: 10 MG, 1X/DAY
     Route: 065
     Dates: start: 20151207, end: 20151210
  30. MYFORTIC [Suspect]
     Active Substance: MYCOPHENOLATE SODIUM
     Indication: IMMUNOSUPPRESSANT DRUG THERAPY
     Dosage: 360 MG, 2X/DAY
     Route: 065
     Dates: start: 201401
  31. KARDEGIC [Concomitant]
     Active Substance: ASPIRIN DL-LYSINE
     Dosage: 75 MG, 1X/DAY
     Dates: start: 20160712
  32. INIPOMP [Concomitant]
     Active Substance: PANTOPRAZOLE SODIUM
     Dosage: 40 MG, 1X/DAY
     Route: 048
     Dates: start: 20140212

REACTIONS (48)
  - Hernial eventration [Not Recovered/Not Resolved]
  - Urinary tract infection [Recovered/Resolved]
  - Irritability [Not Recovered/Not Resolved]
  - Biliary tract infection [Recovered/Resolved]
  - Constipation [Recovered/Resolved]
  - Hyponatraemia [Recovered/Resolved]
  - Pain [Recovered/Resolved]
  - Weight decreased [Recovered/Resolved]
  - Abdominal pain upper [Not Recovered/Not Resolved]
  - Asthenia [Recovered/Resolved]
  - Tongue fungal infection [Unknown]
  - Anaemia [Recovered/Resolved]
  - Nausea [Recovered/Resolved]
  - Anaemia [Recovered/Resolved]
  - Pancreatitis acute [Recovered/Resolved]
  - Vomiting [Recovered/Resolved]
  - Fear [Recovered/Resolved]
  - Diverticulum [Not Recovered/Not Resolved]
  - Cholestasis [Not Recovered/Not Resolved]
  - Herpes zoster [Recovered/Resolved]
  - Abdominal hernia [Not Recovered/Not Resolved]
  - Hypertriglyceridaemia [Not Recovered/Not Resolved]
  - Cholestasis [Recovered/Resolved]
  - Weight increased [Not Recovered/Not Resolved]
  - Dehydration [Recovered/Resolved]
  - Lung disorder [Recovered/Resolved]
  - Decreased appetite [Recovered/Resolved]
  - Gastritis [Recovered/Resolved]
  - Inflammation [Recovered/Resolved]
  - Anastomotic stenosis [Recovered/Resolved]
  - Pancreatic necrosis [Recovered/Resolved]
  - Fatigue [Recovered/Resolved]
  - Hernia [Recovered/Resolved]
  - Gamma-glutamyltransferase increased [Recovered/Resolved]
  - Ageusia [Recovered/Resolved]
  - Pyrexia [Recovered/Resolved]
  - Hypertension [Not Recovered/Not Resolved]
  - Liver abscess [Recovered/Resolved]
  - Diarrhoea [Recovered/Resolved]
  - General physical condition abnormal [Recovered/Resolved]
  - Biliary tract disorder [Not Recovered/Not Resolved]
  - Anastomotic stenosis [Recovered/Resolved]
  - Dizziness [Recovered/Resolved]
  - Sleep disorder [Recovered/Resolved]
  - Renal failure [Not Recovered/Not Resolved]
  - Hyperglycaemia [Unknown]
  - Asthenia [Recovered/Resolved]
  - Biliary dilatation [Unknown]

NARRATIVE: CASE EVENT DATE: 20140212
